FAERS Safety Report 23602537 (Version 2)
Quarter: 2024Q2

REPORT INFORMATION
  Report Type: Spontaneous
  Country: US (occurrence: US)
  Receive Date: 20240306
  Receipt Date: 20240402
  Transmission Date: 20240716
  Serious: No
  Sender: FDA-Public Use
  Company Number: US-PFIZER INC-202400058203

PATIENT
  Age: 15 Year
  Sex: Male

DRUGS (1)
  1. LITFULO [Suspect]
     Active Substance: RITLECITINIB TOSYLATE
     Indication: Alopecia areata
     Dosage: 50 MG ONCE DAILY

REACTIONS (3)
  - Drug ineffective [Unknown]
  - Therapeutic product effect incomplete [Unknown]
  - Off label use [Unknown]
